FAERS Safety Report 18150036 (Version 2)
Quarter: 2020Q3

REPORT INFORMATION
  Report Type: Spontaneous
  Country: FR (occurrence: FR)
  Receive Date: 20200814
  Receipt Date: 20200825
  Transmission Date: 20201103
  Serious: Yes (Other)
  Sender: FDA-Public Use
  Company Number: FR-JNJFOC-20200817673

PATIENT
  Age: 86 Year
  Sex: Female
  Weight: 71 kg

DRUGS (5)
  1. BICARBONATE DE SODIUM COOPER [Suspect]
     Active Substance: SODIUM BICARBONATE
     Indication: PRODUCT USED FOR UNKNOWN INDICATION
     Dosage: UNK
     Route: 065
     Dates: start: 20200630
  2. IMODIUM [Suspect]
     Active Substance: LOPERAMIDE HYDROCHLORIDE
     Indication: DIARRHOEA
     Dosage: UNK, AS NEEDED (2 CAPSULES DURING A SEIZURE THEN 1 CAPSULE AFTER EACH LIQUID STOOL); AS REQUIRED
     Route: 065
     Dates: start: 20200630
  3. PRIMPERAN [Suspect]
     Active Substance: METOCLOPRAMIDE HYDROCHLORIDE
     Indication: NAUSEA
  4. IBRANCE [Suspect]
     Active Substance: PALBOCICLIB
     Indication: PRODUCT USED FOR UNKNOWN INDICATION
     Dosage: 125 MG, CYCLIC ( FOR 3 WEEKS FOLLOWED BY ONE WEEK OFF); CYCLICAL
     Route: 065
     Dates: start: 20200630
  5. PRIMPERAN [Suspect]
     Active Substance: METOCLOPRAMIDE HYDROCHLORIDE
     Indication: VOMITING
     Dosage: 1 DF, AS NEEDED  (MAX THRICE DAILY IF NAUSEA/VOMITING); AS REQUIRED
     Route: 065
     Dates: start: 20200630

REACTIONS (5)
  - Gastrooesophageal reflux disease [Unknown]
  - Anaemia [Unknown]
  - Cough [Unknown]
  - Neutropenia [Not Recovered/Not Resolved]
  - Thrombocytopenia [Unknown]

NARRATIVE: CASE EVENT DATE: 20200803
